FAERS Safety Report 10900503 (Version 2)
Quarter: 2015Q1

REPORT INFORMATION
  Report Type: Spontaneous
  Country: US (occurrence: None)
  Receive Date: 20150303
  Receipt Date: 20150310
  Transmission Date: 20150721
  Serious: Yes (Other)
  Sender: FDA-Public Use
  Company Number: ADR-2015-00413

PATIENT
  Age: 9 Year
  Sex: Male

DRUGS (9)
  1. FLOVENT [Suspect]
     Active Substance: FLUTICASONE PROPIONATE
  2. PRILOSEC [Suspect]
     Active Substance: OMEPRAZOLE MAGNESIUM
  3. MIRALAX [Suspect]
     Active Substance: POLYETHYLENE GLYCOL 3350
  4. LIORESAL [Suspect]
     Active Substance: BACLOFEN
     Indication: MUSCLE SPASTICITY
     Dates: end: 20150211
  5. TRILEPTAL [Suspect]
     Active Substance: OXCARBAZEPINE
  6. ARTANE [Suspect]
     Active Substance: TRIHEXYPHENIDYL HYDROCHLORIDE
  7. ZOFRAN [Suspect]
     Active Substance: ONDANSETRON HYDROCHLORIDE
  8. GABLOFEN [Suspect]
     Active Substance: BACLOFEN
     Indication: CEREBRAL PALSY
     Dates: start: 20150211
  9. DULCOLAX [Suspect]
     Active Substance: BISACODYL OR DOCUSATE SODIUM

REACTIONS (6)
  - Infusion site mass [None]
  - Device malfunction [None]
  - Mental impairment [None]
  - Vomiting [None]
  - Muscle tone disorder [None]
  - Seizure like phenomena [None]
